FAERS Safety Report 5455616-0 (Version None)
Quarter: 2007Q3

REPORT INFORMATION
  Report Type: 
  Country: None (occurrence: None)
  Receive Date: 20070918
  Receipt Date: 20070910
  Transmission Date: 20080115
  Serious: Yes (Hospitalization, Disabling, Other)
  Sender: FDA-Public Use
  Company Number: BE-ABBOTT-06P-013-0353445-00

PATIENT
  Sex: Female

DRUGS (2)
  1. HUMIRA [Suspect]
     Indication: RHEUMATOID ARTHRITIS
     Dates: start: 20030717
  2. HUMIRA [Suspect]
     Dates: end: 20060724

REACTIONS (7)
  - BASOSQUAMOUS CARCINOMA [None]
  - CYSTITIS INTERSTITIAL [None]
  - DERMATITIS PSORIASIFORM [None]
  - ECZEMA ASTEATOTIC [None]
  - INFLAMMATION [None]
  - MASS [None]
  - OLIGURIA [None]
